FAERS Safety Report 7165432-X (Version None)
Quarter: 2010Q4

REPORT INFORMATION
  Report Type: 
  Country: None (occurrence: None)
  Receive Date: 20101215
  Receipt Date: 20101206
  Transmission Date: 20110411
  Serious: Yes (Other)
  Sender: FDA-Public Use
  Company Number: DE-ELI_LILLY_AND_COMPANY-DE201010003200

PATIENT
  Sex: Male
  Weight: 90 kg

DRUGS (8)
  1. NECITUMUMAB (11F8) (LY3012211) [Suspect]
     Indication: NON-SMALL CELL LUNG CANCER
     Dosage: 800 MG, UNK
     Dates: start: 20100716, end: 20100924
  2. PEMETREXED [Suspect]
     Indication: NON-SMALL CELL LUNG CANCER
     Dosage: 1050 MG, UNK
     Dates: start: 20100716, end: 20100917
  3. CISPLATIN [Suspect]
     Indication: NON-SMALL CELL LUNG CANCER
     Dosage: 160 MG, UNK
     Dates: start: 20100716, end: 20100917
  4. FOLSAN [Concomitant]
     Indication: PROPHYLAXIS
     Dates: start: 20100709
  5. CIPRAMIL [Concomitant]
     Indication: DEPRESSION
  6. DOXYCYCLIN [Concomitant]
     Indication: PURULENCE
     Dates: start: 20100726
  7. ZOFRAN [Concomitant]
     Indication: NAUSEA
     Dates: start: 20100827
  8. NOVAMINSULFON [Concomitant]
     Indication: PELVIC PAIN

REACTIONS (1)
  - PULMONARY EMBOLISM [None]
